FAERS Safety Report 14834560 (Version 2)
Quarter: 2018Q3

REPORT INFORMATION
  Report Type: Spontaneous
  Country: IT (occurrence: IT)
  Receive Date: 20180501
  Receipt Date: 20180702
  Transmission Date: 20181010
  Serious: Yes (Death, Other)
  Sender: FDA-Public Use
  Company Number: IT-ALEXION-A201804997

PATIENT
  Age: 54 Year
  Sex: Male

DRUGS (3)
  1. SOLIRIS [Suspect]
     Active Substance: ECULIZUMAB
     Indication: ATYPICAL HAEMOLYTIC URAEMIC SYNDROME
     Dosage: 900 MG, QW
     Route: 065
     Dates: start: 20170922, end: 20171006
  2. SOLIRIS [Suspect]
     Active Substance: ECULIZUMAB
     Dosage: 1200 MG, UNK (EVERY 15 DAYS)
     Route: 065
     Dates: start: 20171013
  3. CIPROFLOXACIN. [Concomitant]
     Active Substance: CIPROFLOXACIN
     Indication: PROPHYLAXIS
     Dosage: UNK
     Route: 065
     Dates: start: 20170921

REACTIONS (5)
  - Condition aggravated [Fatal]
  - Cachexia [Fatal]
  - Graft versus host disease [Unknown]
  - Acute respiratory failure [Fatal]
  - Gastrointestinal inflammation [Unknown]

NARRATIVE: CASE EVENT DATE: 2017
